FAERS Safety Report 22598151 (Version 2)
Quarter: 2024Q2

REPORT INFORMATION
  Report Type: Spontaneous
  Country: US (occurrence: None)
  Receive Date: 20230614
  Receipt Date: 20240613
  Transmission Date: 20240716
  Serious: No
  Sender: FDA-Public Use
  Company Number: US-MDD US Operations-MDD202303-000971

PATIENT
  Age: 76 Year
  Sex: Male
  Weight: 61.235 kg

DRUGS (10)
  1. APOKYN [Suspect]
     Active Substance: APOMORPHINE HYDROCHLORIDE
     Indication: Parkinson^s disease
     Route: 058
  2. APOKYN [Suspect]
     Active Substance: APOMORPHINE HYDROCHLORIDE
     Dates: start: 20240202
  3. APOKYN [Suspect]
     Active Substance: APOMORPHINE HYDROCHLORIDE
  4. CARBIDOPA\LEVODOPA [Concomitant]
     Active Substance: CARBIDOPA\LEVODOPA
     Dosage: NOT PROVIDED (TAKES EVERY 90 MINUTES STARTING AT 08:00 AM)
  5. ROPINIROLE [Concomitant]
     Active Substance: ROPINIROLE
  6. SELEGILINE [Concomitant]
     Active Substance: SELEGILINE
     Dosage: NOT PROVIDED
  7. LINZESS [Concomitant]
     Active Substance: LINACLOTIDE
     Dosage: NOT PROVIDED
  8. INBRIJA [Concomitant]
     Active Substance: LEVODOPA
     Dosage: NOT PROVIDED
  9. GABAPENTIN [Concomitant]
     Active Substance: GABAPENTIN
     Indication: Neuropathy peripheral
  10. RASAGILINE [Concomitant]
     Active Substance: RASAGILINE\RASAGILINE MESYLATE

REACTIONS (5)
  - Weight decreased [Unknown]
  - Malaise [Recovered/Resolved]
  - Orthostatic hypotension [Unknown]
  - Dyskinesia [Recovered/Resolved]
  - Therapy interrupted [Unknown]

NARRATIVE: CASE EVENT DATE: 20240203
